FAERS Safety Report 5739169-5 (Version None)
Quarter: 2008Q2

REPORT INFORMATION
  Report Type: 
  Country: None (occurrence: None)
  Receive Date: 20080515
  Receipt Date: 20080507
  Transmission Date: 20081010
  Serious: Yes (Congenital Anomaly)
  Sender: FDA-Public Use
  Company Number: B0519578A

PATIENT
  Sex: Female

DRUGS (4)
  1. ZIDOVUDINE [Suspect]
     Indication: ANTIVIRAL PROPHYLAXIS
  2. DIDANOSINE [Suspect]
     Indication: HIV INFECTION
     Dosage: 250MG PER DAY
  3. NELFINAVIR [Suspect]
     Indication: HIV INFECTION
     Dosage: 2500MG PER DAY
  4. STAVUDINE [Suspect]
     Indication: HIV INFECTION
     Dosage: 60MG PER DAY

REACTIONS (9)
  - ARTHROPATHY [None]
  - BLOOD LACTATE DEHYDROGENASE INCREASED [None]
  - CONGENITAL CYSTIC KIDNEY DISEASE [None]
  - CONNECTIVE TISSUE DISORDER [None]
  - DRUG EXPOSURE DURING PREGNANCY [None]
  - HYPERTRIGLYCERIDAEMIA [None]
  - LABORATORY TEST ABNORMAL [None]
  - LACTIC ACIDOSIS [None]
  - NEUTROPENIA [None]
